FAERS Safety Report 7401965-6 (Version None)
Quarter: 2011Q2

REPORT INFORMATION
  Report Type: 
  Country: None (occurrence: None)
  Receive Date: 20110408
  Receipt Date: 20100116
  Transmission Date: 20111010
  Serious: Yes (Death, Other)
  Sender: FDA-Public Use
  Company Number: US-BAYER-201011415NA

PATIENT
  Sex: Male
  Weight: 117.1 kg

DRUGS (45)
  1. ALBUTEROL [Concomitant]
     Dosage: TWO PUFFS, FOUR TIMES DAILY
  2. VANCOMYCIN [Concomitant]
     Dosage: 1 G, UNK
     Route: 042
     Dates: start: 20070423, end: 20070425
  3. PLAVIX [Concomitant]
     Dosage: 75 MG, UNK
     Route: 048
  4. MILRINONE [Concomitant]
     Dosage: TITRATE
     Route: 042
     Dates: start: 20070423
  5. NOREPINEPHRINE BITARTRATE [Concomitant]
     Dosage: TITRATE
     Route: 042
     Dates: start: 20070423
  6. TRASYLOL [Suspect]
     Indication: VASCULAR GRAFT
     Dosage: 50CC/HR, INFUSION
     Dates: start: 20070423, end: 20070423
  7. COREG [Concomitant]
     Dosage: 12.5 MG, BID
  8. NITROGLYCERIN [Concomitant]
     Dosage: 0.4MG, AS NEEDED
     Route: 060
  9. HEPARIN [Concomitant]
     Dosage: 10000 U, PRIME
     Dates: start: 20070423, end: 20070423
  10. XYLOCAINE [Concomitant]
     Dosage: 100 MG, UNK
     Route: 042
     Dates: start: 20070423
  11. TRASYLOL [Suspect]
     Dosage: UNK
     Dates: start: 20020506
  12. HEPARIN [Concomitant]
     Dosage: TITRATE
     Route: 042
     Dates: start: 20070418
  13. ANGIOMAX [Concomitant]
     Dosage: 19CC, BOLUS
     Route: 042
     Dates: start: 20070223, end: 20070223
  14. FORANE [Concomitant]
     Dosage: TITRATE, INHALED
     Dates: start: 20070423, end: 20070423
  15. XYLOCAINE [Concomitant]
     Dosage: 100 MG, CARDIOPULMONARY BYPASS
     Dates: start: 20070423, end: 20070423
  16. CALCIUM CHLORIDE DIHYDRATE [Concomitant]
     Dosage: 1 G, CARDIOPULMONARY BYPASS
     Dates: start: 20070423, end: 20070423
  17. MANNITOL [Concomitant]
     Dosage: 50CC, PRIME
     Dates: start: 20070423, end: 20070423
  18. ACETYLSALICYLIC ACID SRT [Concomitant]
     Dosage: 325 MG, QD
     Route: 048
  19. ZESTRIL [Concomitant]
     Dosage: 5 MG, QD
     Dates: start: 20070424
  20. LASIX [Concomitant]
     Dosage: 40 MG, QD
  21. VERSED [Concomitant]
     Dosage: 6 MG, UNK
     Route: 042
     Dates: start: 20070423, end: 20070423
  22. LIPITOR [Concomitant]
     Dosage: 80 MG, QD
  23. ZESTRIL [Concomitant]
     Dosage: 10 MG, QD
     Route: 048
  24. AMIODARONE HCL [Concomitant]
     Dosage: 150 MG, UNK
     Route: 042
     Dates: start: 20070423
  25. METHADONE [Concomitant]
     Indication: PROCEDURAL PAIN
     Dosage: UNK
     Dates: start: 20070424
  26. OXYCODONE HCL [Concomitant]
     Indication: PROCEDURAL PAIN
     Dosage: UNK
     Dates: start: 20070424
  27. IMDUR [Concomitant]
     Dosage: 30 MG, QD
     Route: 048
     Dates: start: 20010801
  28. DIGOXIN [Concomitant]
     Dosage: 0.25 MG, QD
     Route: 048
  29. PAVULON [Concomitant]
     Dosage: 23 MG, UNK
     Route: 042
     Dates: start: 20070423, end: 20070423
  30. LASIX [Concomitant]
     Dosage: 80 MG, MORNING
     Route: 048
  31. POTASSIUM CHLORIDE [Concomitant]
     Dosage: 40 MILLIEQUIVALENTS, DAILY
     Route: 048
  32. HEPARIN [Concomitant]
     Dosage: 40000 U, TOTAL
     Route: 042
     Dates: start: 20070423
  33. ZITHROMAX [Concomitant]
     Dosage: 250 MG, QD
     Route: 048
     Dates: start: 20070223
  34. PROTAMINE SULFATE [Concomitant]
     Dosage: 350 MG, UNK
     Route: 042
     Dates: start: 20070423, end: 20070423
  35. SODIUM BICARBONATE [Concomitant]
     Dosage: 50CC, PRIME
     Dates: start: 20070423, end: 20070423
  36. TRASYLOL [Suspect]
     Indication: CORONARY ARTERY BYPASS
     Dosage: 200CC, LOADING DOSE
     Route: 042
     Dates: start: 20070423, end: 20070423
  37. ALDACTONE [Concomitant]
     Dosage: 25 MG, QD
     Route: 048
  38. ANGIOMAX [Concomitant]
     Dosage: TITRATE
     Dates: start: 20070223, end: 20070223
  39. NITROGLYCERIN [Concomitant]
     Dosage: 5.00MCG/HR
     Route: 042
     Dates: start: 20070221
  40. SUFENTA PRESERVATIVE FREE [Concomitant]
     Dosage: 225 ?G, TOTAL
     Route: 042
     Dates: start: 20070423, end: 20070423
  41. ETOMIDATE [Concomitant]
     Dosage: 20 MG, UNK
     Route: 042
     Dates: start: 20070423, end: 20070423
  42. GLUCOSE [Concomitant]
     Dosage: 180 MG, UNK
     Route: 042
     Dates: start: 20070423
  43. PROPOFOL [Concomitant]
     Dosage: TITRATE
     Route: 042
     Dates: start: 20070423
  44. PHENYLEPHRINE HCL [Concomitant]
     Dosage: 100 MG, CARDIOPULMOARY BYPASS
     Dates: start: 20070423, end: 20070423
  45. NEURONTIN [Concomitant]
     Indication: PROCEDURAL PAIN
     Dosage: UNK
     Dates: start: 20070424

REACTIONS (15)
  - ORGAN FAILURE [None]
  - PAIN [None]
  - RENAL FAILURE [None]
  - CARDIAC DISORDER [None]
  - CEREBROVASCULAR ACCIDENT [None]
  - DEPRESSION [None]
  - RENAL IMPAIRMENT [None]
  - RENAL INJURY [None]
  - DEATH [None]
  - UNEVALUABLE EVENT [None]
  - ANXIETY [None]
  - ANHEDONIA [None]
  - MYOCARDIAL INFARCTION [None]
  - FEAR [None]
  - INJURY [None]
